FAERS Safety Report 5957980-2 (Version None)
Quarter: 2008Q4

REPORT INFORMATION
  Report Type: 
  Country: None (occurrence: None)
  Receive Date: 20081119
  Receipt Date: 20081109
  Transmission Date: 20090506
  Serious: Yes (Hospitalization, Other)
  Sender: FDA-Public Use
  Company Number: US-ABBOTT-08P-163-0486749-00

PATIENT
  Sex: Female
  Weight: 37.228 kg

DRUGS (3)
  1. HUMIRA [Suspect]
     Indication: CROHN'S DISEASE
     Dosage: 160MG/FOUR PENS
     Route: 058
     Dates: start: 20081009, end: 20081009
  2. HUMIRA [Suspect]
     Dosage: SECOND TWO INJECTIONS
     Route: 050
     Dates: start: 20081023, end: 20081023
  3. HUMIRA [Suspect]
     Route: 050
     Dates: start: 20081031

REACTIONS (3)
  - COLONIC STENOSIS [None]
  - CROHN'S DISEASE [None]
  - PROCEDURAL COMPLICATION [None]
